FAERS Safety Report 8520108-9 (Version None)
Quarter: 2012Q3

REPORT INFORMATION
  Report Type: 
  Country: None (occurrence: None)
  Receive Date: 20120719
  Receipt Date: 20120712
  Transmission Date: 20120928
  Serious: Yes (Other)
  Sender: FDA-Public Use
  Company Number: AT-PAR PHARMACEUTICAL, INC-2012SCPR004507

PATIENT

DRUGS (10)
  1. FENTANYL [Interacting]
     Indication: INDUCTION OF ANAESTHESIA
     Dosage: 0.15 MG, UNKNOWN
     Route: 065
  2. RANITIDINE [Suspect]
     Indication: PRODUCT USED FOR UNKNOWN INDICATION
     Dosage: 50 MG, UNKNOWN
     Route: 065
  3. GLYCOPYRROLATE [Concomitant]
     Indication: PRODUCT USED FOR UNKNOWN INDICATION
     Dosage: UNK, UNKNOWN
     Route: 065
  4. NITROUS OXIDE W/ OXYGEN [Concomitant]
     Indication: INDUCTION OF ANAESTHESIA
     Dosage: UNK, UNKNOWN
     Route: 065
  5. PROPOFOL [Interacting]
     Dosage: 400 MG, /HR
     Route: 065
  6. DICLOFENAC [Concomitant]
     Indication: PRODUCT USED FOR UNKNOWN INDICATION
     Dosage: UNK, UNKNOWN
     Route: 065
  7. PROPOFOL [Interacting]
     Indication: INDUCTION OF ANAESTHESIA
     Dosage: 200 MG, SINGLE
     Route: 051
  8. NEOSTIGMINE METHYLSULFATE [Interacting]
     Indication: INDUCTION OF ANAESTHESIA
     Dosage: 3.2 MG, UNKNOWN
     Route: 065
  9. ROCURONIUM BROMIDE [Concomitant]
     Indication: PRODUCT USED FOR UNKNOWN INDICATION
     Dosage: UNK, UNKNOWN
     Route: 065
  10. MIDAZOLAM [Interacting]
     Indication: INDUCTION OF ANAESTHESIA
     Dosage: 7.5 MG, UNKNOWN
     Route: 048

REACTIONS (2)
  - DRUG INTERACTION [None]
  - ATRIOVENTRICULAR DISSOCIATION [None]
